FAERS Safety Report 9431297 (Version 1)
Quarter: 2013Q3

REPORT INFORMATION
  Report Type: Spontaneous
  Country: US (occurrence: US)
  Receive Date: 20130730
  Receipt Date: 20130730
  Transmission Date: 20140515
  Serious: Yes (Other)
  Sender: FDA-Public Use
  Company Number: US-PFIZER INC-2013217821

PATIENT
  Age: 48 Year
  Sex: Male
  Weight: 99.77 kg

DRUGS (2)
  1. DIDREX [Suspect]
     Indication: WEIGHT DECREASED
     Dosage: 50 MG, 3X/DAY
     Dates: start: 2005, end: 2007
  2. DIDREX [Suspect]
     Dosage: 50 MG, 3X/DAY
     Dates: start: 2013

REACTIONS (1)
  - Diverticulitis [Unknown]
